FAERS Safety Report 25519519 (Version 1)
Quarter: 2025Q3

REPORT INFORMATION
  Report Type: Spontaneous
  Country: US (occurrence: US)
  Receive Date: 20250704
  Receipt Date: 20250704
  Transmission Date: 20251021
  Serious: No
  Sender: BAUSCH AND LOMB
  Company Number: None

PATIENT
  Sex: Female

DRUGS (1)
  1. TRULANCE [Suspect]
     Active Substance: PLECANATIDE
     Indication: Irritable bowel syndrome
     Route: 048
     Dates: start: 2020

REACTIONS (5)
  - Gastrointestinal tract irritation [Unknown]
  - Glossitis [Unknown]
  - Throat irritation [Unknown]
  - Oesophageal irritation [Unknown]
  - Oesophageal mass [Unknown]
